FAERS Safety Report 9491785 (Version 3)
Quarter: 2013Q4

REPORT INFORMATION
  Report Type: Not Available
  Country: US (occurrence: US)
  Receive Date: 20130919
  Receipt Date: 20131016
  Transmission Date: 20140711
  Serious: No
  Sender: FDA-Public Use
  Company Number: US-LUNDBECK-DKLU1083211

PATIENT
  Sex: Male

DRUGS (3)
  1. SABRIL (FOR ORAL SOLUTION) [Suspect]
     Indication: INFANTILE SPASMS
     Dates: start: 20100527
  2. SABRIL (FOR ORAL SOLUTION) [Suspect]
  3. SABRIL (TABLET) [Suspect]
     Indication: INFANTILE SPASMS

REACTIONS (2)
  - Strabismus [Unknown]
  - Strabismus [Unknown]
